FAERS Safety Report 7827328-7 (Version None)
Quarter: 2011Q4

REPORT INFORMATION
  Report Type: 
  Country: None (occurrence: None)
  Receive Date: 20111020
  Receipt Date: 20111017
  Transmission Date: 20120403
  Serious: Yes (Other)
  Sender: FDA-Public Use
  Company Number: US-BRISTOL-MYERS SQUIBB COMPANY-16168270

PATIENT
  Age: 5 Decade
  Sex: Male

DRUGS (2)
  1. VYVANSE [Suspect]
  2. ABILIFY [Suspect]
     Indication: DEPRESSION
     Dosage: APPROXIMATELY FOURTH MONTHS AGO
     Dates: start: 20110101

REACTIONS (2)
  - PANIC ATTACK [None]
  - SELF INJURIOUS BEHAVIOUR [None]
